FAERS Safety Report 21164108 (Version 1)
Quarter: 2022Q3

REPORT INFORMATION
  Report Type: Spontaneous
  Country: IT (occurrence: IT)
  Receive Date: 20220803
  Receipt Date: 20220803
  Transmission Date: 20221027
  Serious: Yes (Hospitalization)
  Sender: FDA-Public Use
  Company Number: None

PATIENT
  Age: 60 Year
  Sex: Female
  Weight: 62 kg

DRUGS (1)
  1. PACLITAXEL [Suspect]
     Active Substance: PACLITAXEL
     Indication: Tubular breast carcinoma
     Dosage: DURATION : 22 DAYS
     Dates: start: 20220615, end: 20220707

REACTIONS (1)
  - Bronchospasm [Recovered/Resolved with Sequelae]

NARRATIVE: CASE EVENT DATE: 20220707
